FAERS Safety Report 6137506-3 (Version None)
Quarter: 2009Q1

REPORT INFORMATION
  Report Type: 
  Country: None (occurrence: None)
  Receive Date: 20090326
  Receipt Date: 20090313
  Transmission Date: 20090719
  Serious: Yes (Hospitalization)
  Sender: FDA-Public Use
  Company Number: 1000005420

PATIENT
  Age: 37 Year
  Sex: Female

DRUGS (2)
  1. ESCITALOPRAM [Suspect]
     Dates: start: 20090311
  2. ASPIRIN [Suspect]
     Dates: start: 20090310

REACTIONS (2)
  - LOSS OF CONSCIOUSNESS [None]
  - TACHYCARDIA [None]
